FAERS Safety Report 6604823-X (Version None)
Quarter: 2010Q1

REPORT INFORMATION
  Report Type: 
  Country: None (occurrence: None)
  Receive Date: 20100226
  Receipt Date: 20100217
  Transmission Date: 20100710
  Serious: Yes (Hospitalization)
  Sender: FDA-Public Use
  Company Number: JP-ROCHE-687206

PATIENT
  Sex: Female

DRUGS (13)
  1. TOCILIZUMAB [Suspect]
     Indication: RHEUMATOID ARTHRITIS
     Route: 041
     Dates: start: 20090603, end: 20090603
  2. TOCILIZUMAB [Suspect]
     Route: 041
     Dates: start: 20090701, end: 20090701
  3. TOCILIZUMAB [Suspect]
     Route: 041
     Dates: start: 20090729, end: 20090729
  4. METOLATE [Suspect]
     Indication: RHEUMATOID ARTHRITIS
     Route: 048
     Dates: start: 20090801
  5. METOLATE [Suspect]
     Route: 048
     Dates: start: 20090101
  6. PREDNISOLONE [Suspect]
     Indication: RHEUMATOID ARTHRITIS
     Route: 048
     Dates: end: 20090330
  7. PREDONINE [Suspect]
     Indication: RHEUMATOID ARTHRITIS
     Dosage: DRUG REPORTED AS PREDONINE
     Route: 048
     Dates: start: 20090331, end: 20090815
  8. ARAVA [Concomitant]
     Route: 048
     Dates: start: 20090331, end: 20090729
  9. LOXONIN [Concomitant]
     Dosage: DOSE FORM: PERORAL AGENT
     Route: 048
  10. VOLTAREN [Concomitant]
     Dosage: DOSE FORM: SUPPOSITORIAE RECTALE
     Route: 054
  11. FOLIAMIN [Concomitant]
     Dosage: DOSE FORM: PERORAL AGENT
     Route: 048
  12. EVISTA [Concomitant]
     Route: 048
  13. GASTER [Concomitant]
     Route: 048

REACTIONS (1)
  - PNEUMOCYSTIS JIROVECI PNEUMONIA [None]
